FAERS Safety Report 8318153-1 (Version None)
Quarter: 2012Q2

REPORT INFORMATION
  Report Type: 
  Country: None (occurrence: None)
  Receive Date: 20120427
  Receipt Date: 20120417
  Transmission Date: 20120825
  Serious: Yes (Other)
  Sender: FDA-Public Use
  Company Number: JP-ROCHE-1061024

PATIENT
  Sex: Male

DRUGS (5)
  1. TAMIFLU [Suspect]
     Indication: INFLUENZA
     Route: 048
     Dates: start: 20120406, end: 20120406
  2. ASVERIN [Concomitant]
     Indication: COUGH
     Route: 048
     Dates: start: 20120406, end: 20120407
  3. ZESULAN [Concomitant]
     Indication: RHINORRHOEA
     Route: 048
     Dates: start: 20120406, end: 20120407
  4. ACETAMINOPHEN [Concomitant]
     Dosage: TAKEN AS NEEDED.
     Route: 048
     Dates: start: 20120406, end: 20120407
  5. TRANSAMINE CAP [Concomitant]
     Indication: OROPHARYNGEAL PAIN
     Route: 048
     Dates: start: 20120406, end: 20120407

REACTIONS (2)
  - PSYCHIATRIC SYMPTOM [None]
  - SUBDURAL HAEMATOMA [None]
